FAERS Safety Report 6111326-8 (Version None)
Quarter: 2009Q1

REPORT INFORMATION
  Report Type: 
  Country: None (occurrence: None)
  Receive Date: 20090311
  Receipt Date: 20090304
  Transmission Date: 20090719
  Serious: Yes (Hospitalization, Congenital Anomaly)
  Sender: FDA-Public Use
  Company Number: A0679358A

PATIENT
  Sex: Female
  Weight: 3.8 kg

DRUGS (1)
  1. PAXIL [Suspect]
     Indication: DEPRESSION
     Dosage: 60MG IN THE MORNING

REACTIONS (11)
  - ATRIAL SEPTAL DEFECT [None]
  - CONGENITAL BLADDER ANOMALY [None]
  - CONGENITAL CARDIOVASCULAR ANOMALY [None]
  - DIGEORGE'S SYNDROME [None]
  - DRUG EXPOSURE DURING PREGNANCY [None]
  - DYSMORPHISM [None]
  - FALLOT'S TETRALOGY [None]
  - HEART VALVE STENOSIS [None]
  - PATENT DUCTUS ARTERIOSUS [None]
  - RENAL HYPOPLASIA [None]
  - VENTRICULAR SEPTAL DEFECT [None]
